FAERS Safety Report 22133383 (Version 2)
Quarter: 2023Q1

REPORT INFORMATION
  Report Type: Spontaneous
  Country: CA (occurrence: CA)
  Receive Date: 20230324
  Receipt Date: 20230328
  Transmission Date: 20230418
  Serious: Yes (Other)
  Sender: FDA-Public Use
  Company Number: CA-CELLTRION INC.-2022CA008932

PATIENT

DRUGS (6)
  1. INFLECTRA [Suspect]
     Active Substance: INFLIXIMAB-DYYB
     Indication: Colitis ulcerative
     Dosage: 500 MG, CYCLIC (4 WEEK INTERVAL BETWEEN INFUSIONS)
     Route: 042
     Dates: start: 20220406
  2. INFLECTRA [Suspect]
     Active Substance: INFLIXIMAB-DYYB
     Dosage: 500 MG, CYCLIC (4 WEEK INTERVAL BETWEEN INFUSIONS)
     Route: 042
     Dates: start: 20220309
  3. INFLECTRA [Suspect]
     Active Substance: INFLIXIMAB-DYYB
     Dosage: 500 MG, CYCLIC (4 WEEK INTERVAL BETWEEN INFUSIONS)
     Route: 042
     Dates: start: 20220601
  4. INFLECTRA [Suspect]
     Active Substance: INFLIXIMAB-DYYB
     Dosage: 500 MG, CYCLIC (4 WEEK INTERVAL BETWEEN INFUSIONS)
     Route: 042
     Dates: start: 20230109
  5. INFLECTRA [Suspect]
     Active Substance: INFLIXIMAB-DYYB
     Dosage: 500 MG, CYCLIC (4 WEEK INTERVAL BETWEEN INFUSIONS)
     Route: 042
     Dates: start: 20230109
  6. INFLECTRA [Suspect]
     Active Substance: INFLIXIMAB-DYYB
     Dosage: 500 MG ,EVERY 4 WEEKS
     Route: 042
     Dates: start: 20230310

REACTIONS (7)
  - Pneumonia [Recovered/Resolved]
  - Nasal congestion [Unknown]
  - Nasopharyngitis [Unknown]
  - Headache [Unknown]
  - Off label use [Unknown]
  - Intentional product use issue [Unknown]
  - Off label use [Unknown]
